FAERS Safety Report 8918101 (Version 1)
Quarter: 2012Q4

REPORT INFORMATION
  Report Type: 
  Country: US (occurrence: US)
  Receive Date: 20121120
  Receipt Date: 20121120
  Transmission Date: 20130627
  Serious: No
  Sender: FDA-Public Use
  Company Number: US-ASTRAZENECA-2012SE21631

PATIENT
  Age: 70 Year
  Sex: Female

DRUGS (2)
  1. NEXIUM [Suspect]
     Route: 048
  2. PRILOSEC [Suspect]
     Route: 048

REACTIONS (16)
  - Chest discomfort [Unknown]
  - Oesophageal pain [Unknown]
  - Dyspnoea [Unknown]
  - Sleep apnoea syndrome [Unknown]
  - Abdominal distension [Unknown]
  - Regurgitation [Unknown]
  - Abdominal distension [Unknown]
  - Epigastric discomfort [Unknown]
  - Constipation [Unknown]
  - Diarrhoea [Unknown]
  - Intentional drug misuse [Unknown]
  - Weight decreased [Unknown]
  - Hypothyroidism [Unknown]
  - Hypertension [Unknown]
  - Drug ineffective [Unknown]
  - Gastrooesophageal reflux disease [Unknown]
